FAERS Safety Report 6710511-1 (Version None)
Quarter: 2010Q2

REPORT INFORMATION
  Report Type: 
  Country: None (occurrence: None)
  Receive Date: 20100430
  Receipt Date: 20100421
  Transmission Date: 20101027
  Serious: Yes (Other)
  Sender: FDA-Public Use
  Company Number: 2010BN000025

PATIENT
  Age: 39 Year
  Sex: Female

DRUGS (1)
  1. MELPHALAN HYDROCHLORIDE [Suspect]
     Indication: MULTIPLE MYELOMA
     Dosage: 140 MG/M2;
     Dates: start: 20060701

REACTIONS (7)
  - FEBRILE NEUTROPENIA [None]
  - HYPERCOAGULATION [None]
  - MUCOSAL INFLAMMATION [None]
  - NEPHROTIC SYNDROME [None]
  - RENAL IMPAIRMENT [None]
  - SEPTIC SHOCK [None]
  - STEM CELL TRANSPLANT [None]
